FAERS Safety Report 6720598-8 (Version None)
Quarter: 2010Q2

REPORT INFORMATION
  Report Type: 
  Country: None (occurrence: None)
  Receive Date: 20100510
  Receipt Date: 20100426
  Transmission Date: 20101027
  Serious: Yes (Disabling)
  Sender: FDA-Public Use
  Company Number: 2010AC000318

PATIENT
  Sex: Male

DRUGS (1)
  1. DIGOXIN [Suspect]
     Indication: ARRHYTHMIA
     Dosage: PO
     Route: 048
     Dates: start: 20080101, end: 20080101

REACTIONS (14)
  - ANXIETY [None]
  - ARRHYTHMIA [None]
  - ATRIOVENTRICULAR BLOCK [None]
  - CONVULSION [None]
  - DELIRIUM [None]
  - DEPRESSION [None]
  - ECONOMIC PROBLEM [None]
  - EMOTIONAL DISTRESS [None]
  - HALLUCINATION [None]
  - HYPERSENSITIVITY [None]
  - INCORRECT DOSE ADMINISTERED [None]
  - MULTIPLE INJURIES [None]
  - PAIN [None]
  - PSYCHOTIC DISORDER [None]
